FAERS Safety Report 16589072 (Version 1)
Quarter: 2019Q3

REPORT INFORMATION
  Report Type: Spontaneous
  Country: US (occurrence: US)
  Receive Date: 20190718
  Receipt Date: 20190718
  Transmission Date: 20191004
  Serious: No
  Sender: FDA-Public Use
  Company Number: US-GLAXOSMITHKLINE-US2019128559

PATIENT
  Age: 77 Year
  Sex: Female

DRUGS (3)
  1. CARMEX [Suspect]
     Active Substance: CAMPHOR\MENTHOL\PHENOL\POTASSIUM ALUM\SALICYLIC ACID
     Indication: PRODUCT USED FOR UNKNOWN INDICATION
     Dosage: UNK
  2. ABREVA [Suspect]
     Active Substance: DOCOSANOL
     Indication: ORAL HERPES
     Dosage: UNK UNK, QD(6 TO8 TIMES)
     Route: 061
     Dates: start: 20190702
  3. ABREVA [Suspect]
     Active Substance: DOCOSANOL
     Dosage: UNK,QD(6 TO 8 TIMES)

REACTIONS (4)
  - Wrong technique in product usage process [Unknown]
  - Oral herpes [Unknown]
  - Inappropriate schedule of product administration [Unknown]
  - Condition aggravated [Unknown]

NARRATIVE: CASE EVENT DATE: 20190702
